FAERS Safety Report 23636277 (Version 1)
Quarter: 2024Q1

REPORT INFORMATION
  Report Type: Spontaneous
  Country: US (occurrence: US)
  Receive Date: 20240315
  Receipt Date: 20240315
  Transmission Date: 20240409
  Serious: No
  Sender: FDA-Public Use
  Company Number: US-TEVA-VS-3155685

PATIENT
  Age: 65 Year
  Sex: Female

DRUGS (8)
  1. PROVIGIL [Suspect]
     Active Substance: MODAFINIL
     Indication: Product used for unknown indication
     Route: 065
  2. XYWAV [Suspect]
     Active Substance: CALCIUM OXYBATE\MAGNESIUM OXYBATE\POTASSIUM OXYBATE\SODIUM OXYBATE
     Indication: Narcolepsy
     Dosage: (4.5-GRAM, BID)0.5 GRAM PER MILLILITER.
     Route: 065
  3. CRANBERRY [Concomitant]
     Active Substance: CRANBERRY
  4. SYNTHROID [Concomitant]
     Active Substance: LEVOTHYROXINE SODIUM
     Dosage: ONGOING
     Dates: start: 20150601
  5. FLUCONAZOLE [Concomitant]
     Active Substance: FLUCONAZOLE
     Dosage: ONGOING
     Dates: start: 20180301
  6. KETOROLAC [Concomitant]
     Active Substance: KETOROLAC TROMETHAMINE
     Dosage: ONGOING
     Dates: start: 20190516
  7. ONDANSETRON [Concomitant]
     Active Substance: ONDANSETRON
     Dosage: 4
  8. SODIUM CHLORIDE [Concomitant]
     Active Substance: SODIUM CHLORIDE
     Dosage: 0.9 PERCENT; 14

REACTIONS (5)
  - Hypoaesthesia [Unknown]
  - Emotional poverty [Unknown]
  - Product administration interrupted [Unknown]
  - Post-traumatic stress disorder [Unknown]
  - Anxiety [Unknown]
